FAERS Safety Report 7324153-0 (Version None)
Quarter: 2011Q1

REPORT INFORMATION
  Report Type: 
  Country: None (occurrence: None)
  Receive Date: 20110301
  Receipt Date: 20110222
  Transmission Date: 20110831
  Serious: Yes (Other)
  Sender: FDA-Public Use
  Company Number: AU-MERCK-1102USA02854

PATIENT
  Age: 69 Year
  Sex: Female

DRUGS (1)
  1. FOSAMAX [Suspect]
     Route: 048

REACTIONS (2)
  - OESOPHAGEAL CARCINOMA [None]
  - WRONG TECHNIQUE IN DRUG USAGE PROCESS [None]
